FAERS Safety Report 8138115-7 (Version None)
Quarter: 2012Q1

REPORT INFORMATION
  Report Type: 
  Country: None (occurrence: None)
  Receive Date: 20120215
  Receipt Date: 20120215
  Transmission Date: 20120608
  Serious: Yes (Other)
  Sender: FDA-Public Use
  Company Number: None

PATIENT
  Age: 42 Year
  Sex: Male
  Weight: 83.914 kg

DRUGS (1)
  1. MUCINEX [Suspect]
     Indication: RESPIRATORY TRACT CONGESTION
     Dosage: 1200MG
     Route: 048

REACTIONS (6)
  - REFUSAL OF TREATMENT BY PATIENT [None]
  - HEART RATE INCREASED [None]
  - NAUSEA [None]
  - ANXIETY [None]
  - VOMITING [None]
  - TREMOR [None]
